FAERS Safety Report 24091658 (Version 2)
Quarter: 2024Q3

REPORT INFORMATION
  Report Type: Spontaneous
  Country: FR (occurrence: FR)
  Receive Date: 20240715
  Receipt Date: 20240717
  Transmission Date: 20241017
  Serious: Yes (Other)
  Sender: LUNDBECK
  Company Number: FR-LUNDBECK-DKLU4001629

PATIENT

DRUGS (2)
  1. VYEPTI [Suspect]
     Active Substance: EPTINEZUMAB-JJMR
     Dosage: 100 003
     Route: 041
     Dates: start: 20240710
  2. VYEPTI [Suspect]
     Active Substance: EPTINEZUMAB-JJMR
     Indication: Product used for unknown indication

REACTIONS (1)
  - Asthmatic crisis [Unknown]

NARRATIVE: CASE EVENT DATE: 20240710
